FAERS Safety Report 10304721 (Version 1)
Quarter: 2014Q3

REPORT INFORMATION
  Report Type: Other
  Country: DE (occurrence: DE)
  Receive Date: 20140715
  Receipt Date: 20140715
  Transmission Date: 20150326
  Serious: Yes (Hospitalization)
  Sender: FDA-Public Use
  Company Number: DE-LUPIN PHARMACEUTICALS INC.-2014-01279

PATIENT
  Age: 64 Year
  Sex: Male

DRUGS (4)
  1. CARBAMAZEPINE. [Suspect]
     Active Substance: CARBAMAZEPINE
     Indication: NEURALGIA
     Route: 065
  2. TRAMADOL [Suspect]
     Active Substance: TRAMADOL
     Indication: BACK PAIN
     Route: 065
  3. DIPYRONE [Suspect]
     Active Substance: DIPYRONE
     Indication: BACK PAIN
     Route: 065
  4. MELOXICAM. [Suspect]
     Active Substance: MELOXICAM
     Indication: BACK PAIN
     Route: 065

REACTIONS (1)
  - Drug reaction with eosinophilia and systemic symptoms [Unknown]
